FAERS Safety Report 23849610 (Version 1)
Quarter: 2024Q2

REPORT INFORMATION
  Report Type: Spontaneous
  Country: US (occurrence: None)
  Receive Date: 20240511
  Receipt Date: 20240511
  Transmission Date: 20240716
  Serious: Yes (Life-Threatening, Hospitalization)
  Sender: FDA-Public Use
  Company Number: None

PATIENT
  Age: 37 Year
  Sex: Female
  Weight: 69.75 kg

DRUGS (4)
  1. DULOXETINE HYDROCHLORIDE [Suspect]
     Active Substance: DULOXETINE HYDROCHLORIDE
     Indication: Fibromyalgia
     Dosage: OTHER QUANTITY : 1 CAPSULE(S);?FREQUENCY : DAILY;?
     Route: 048
     Dates: start: 20240509, end: 20240509
  2. CELEBREX [Concomitant]
     Active Substance: CELECOXIB
  3. HYDROXYCHLOROQUINE [Concomitant]
     Active Substance: HYDROXYCHLOROQUINE
  4. METOPROLOL TARTRATE [Concomitant]
     Active Substance: METOPROLOL TARTRATE

REACTIONS (22)
  - Depressed mood [None]
  - Diarrhoea [None]
  - Nausea [None]
  - Somnolence [None]
  - Feeling abnormal [None]
  - Abnormal dreams [None]
  - Nightmare [None]
  - Fear [None]
  - Paranoia [None]
  - Respiration abnormal [None]
  - Blood pressure decreased [None]
  - Chest pain [None]
  - Loss of consciousness [None]
  - Unresponsive to stimuli [None]
  - Pulse abnormal [None]
  - Arrhythmia [None]
  - Neuralgia [None]
  - Muscle spasms [None]
  - Headache [None]
  - Suicidal ideation [None]
  - Malaise [None]
  - Asthenia [None]

NARRATIVE: CASE EVENT DATE: 20240509
